FAERS Safety Report 7045721-X (Version None)
Quarter: 2010Q4

REPORT INFORMATION
  Report Type: 
  Country: None (occurrence: None)
  Receive Date: 20101013
  Receipt Date: 20101013
  Transmission Date: 20110411
  Serious: No
  Sender: FDA-Public Use
  Company Number: None

PATIENT
  Sex: Female
  Weight: 72.9 kg

DRUGS (1)
  1. FRAGMIN [Suspect]
     Indication: DEEP VEIN THROMBOSIS
     Dosage: 12,500 UNITS DAILY SUBCUTANEOUS
     Route: 058
     Dates: start: 20100909, end: 20101004

REACTIONS (1)
  - GASTROINTESTINAL HAEMORRHAGE [None]
